FAERS Safety Report 16798514 (Version 1)
Quarter: 2019Q3

REPORT INFORMATION
  Report Type: Spontaneous
  Country: US (occurrence: US)
  Receive Date: 20190722
  Receipt Date: 20190722
  Transmission Date: 20191005
  Serious: Yes (Death)
  Sender: FDA-Public Use
  Company Number: None

PATIENT
  Age: 62 Year
  Sex: Male

DRUGS (12)
  1. AMLODIPINE BESYLATE. [Concomitant]
     Active Substance: AMLODIPINE BESYLATE
  2. ABIRATERONE 250 MG [Suspect]
     Active Substance: ABIRATERONE
     Indication: PROSTATE CANCER
     Route: 048
  3. OXYCODONE [Concomitant]
     Active Substance: OXYCODONE
  4. PANTOPRAZOLE [Concomitant]
     Active Substance: PANTOPRAZOLE
  5. DRONABINOL. [Concomitant]
     Active Substance: DRONABINOL
  6. NO DRUG NAME [Concomitant]
  7. PREDNISONE. [Concomitant]
     Active Substance: PREDNISONE
  8. TRAZODONE [Concomitant]
     Active Substance: TRAZODONE HYDROCHLORIDE
  9. TRELSTAR [Concomitant]
     Active Substance: TRIPTORELIN PAMOATE
  10. POTASSIUM [Concomitant]
     Active Substance: POTASSIUM
  11. ONDANSETRON [Concomitant]
     Active Substance: ONDANSETRON
  12. NARCAN [Concomitant]
     Active Substance: NALOXONE HYDROCHLORIDE

REACTIONS (1)
  - Death [None]
